FAERS Safety Report 5587776-5 (Version None)
Quarter: 2007Q4

REPORT INFORMATION
  Report Type: 
  Country: None (occurrence: None)
  Receive Date: 20071205
  Receipt Date: 20070116
  Transmission Date: 20080405
  Serious: Yes (Hospitalization)
  Sender: FDA-Public Use
  Company Number: E3810-00579-SPO-US

PATIENT
  Age: 74 Year
  Sex: Female

DRUGS (3)
  1. ACIPHEX [Suspect]
     Indication: GASTROOESOPHAGEAL REFLUX DISEASE
     Dosage: 40 MG, 2 IN 1 D, ORAL
     Route: 048
     Dates: start: 20050101, end: 20061201
  2. EVISTA [Concomitant]
  3. CALCIUM (CALCIUM) [Concomitant]

REACTIONS (3)
  - HYPERTHYROIDISM [None]
  - LOSS OF CONSCIOUSNESS [None]
  - OSTEOPOROSIS [None]
